FAERS Safety Report 15840000 (Version 2)
Quarter: 2019Q1

REPORT INFORMATION
  Report Type: Spontaneous
  Country: US (occurrence: US)
  Receive Date: 20190117
  Receipt Date: 20190125
  Transmission Date: 20190417
  Serious: Yes (Hospitalization, Other)
  Sender: FDA-Public Use
  Company Number: US-009507513-1010USA03363

PATIENT
  Sex: Female
  Weight: 62.14 kg

DRUGS (7)
  1. FOSAMAX [Suspect]
     Active Substance: ALENDRONATE SODIUM
     Dosage: 70 MG, UNK
     Route: 048
     Dates: start: 20040708, end: 20070412
  2. FOSAMAX PLUS D [Suspect]
     Active Substance: ALENDRONATE SODIUM\CHOLECALCIFEROL
     Indication: OSTEOPENIA
     Dosage: 70MG/2800
     Route: 048
     Dates: start: 20071115, end: 200808
  3. BETOPIC [Concomitant]
     Indication: GLAUCOMA
     Dates: start: 199110
  4. PREMARIN [Concomitant]
     Active Substance: ESTROGENS, CONJUGATED
     Indication: MENOPAUSAL SYMPTOMS
     Dates: start: 19931025
  5. FOSAMAX PLUS D [Suspect]
     Active Substance: ALENDRONATE SODIUM\CHOLECALCIFEROL
     Indication: OSTEOPOROSIS
  6. FOSAMAX [Suspect]
     Active Substance: ALENDRONATE SODIUM
     Indication: OSTEOPENIA
     Dosage: 5 MG, UNK
     Route: 048
     Dates: start: 199706, end: 199903
  7. FOSAMAX [Suspect]
     Active Substance: ALENDRONATE SODIUM
     Indication: OSTEOPOROSIS
     Dosage: 10 MG, UNK
     Route: 048
     Dates: start: 19990316

REACTIONS (43)
  - Depression [Unknown]
  - Hyperthyroidism [Unknown]
  - Haemorrhoids [Not Recovered/Not Resolved]
  - Weight decreased [Unknown]
  - Fall [Unknown]
  - Otitis media [Unknown]
  - Vitamin D deficiency [Unknown]
  - Tooth disorder [Unknown]
  - Femur fracture [Recovered/Resolved]
  - Headache [Unknown]
  - Impaired healing [Unknown]
  - Insomnia [Unknown]
  - Alanine aminotransferase increased [Unknown]
  - Diarrhoea [Recovered/Resolved]
  - Hypothyroidism [Unknown]
  - Joint effusion [Unknown]
  - Bone disorder [Unknown]
  - Bone disorder [Unknown]
  - Facial bones fracture [Unknown]
  - Anxiety [Unknown]
  - Spider vein [Unknown]
  - Periarthritis [Unknown]
  - Femur fracture [Not Recovered/Not Resolved]
  - Bone disorder [Unknown]
  - Bursitis [Unknown]
  - Anaemia [Unknown]
  - Thyroid mass [Unknown]
  - Dry eye [Unknown]
  - Goitre [Unknown]
  - Contusion [Unknown]
  - Osteonecrosis [Unknown]
  - Pulpitis dental [Unknown]
  - Morton^s neuralgia [Unknown]
  - Low turnover osteopathy [Unknown]
  - Dizziness [Unknown]
  - Upper respiratory tract infection [Unknown]
  - Rectal haemorrhage [Unknown]
  - Sensitivity of teeth [Unknown]
  - Headache [Unknown]
  - Dental caries [Unknown]
  - Anxiety [Unknown]
  - Eye disorder [Unknown]
  - Tooth disorder [Unknown]

NARRATIVE: CASE EVENT DATE: 1999
